FAERS Safety Report 11992570 (Version 1)
Quarter: 2016Q1

REPORT INFORMATION
  Report Type: Spontaneous
  Country: US (occurrence: US)
  Receive Date: 20160203
  Receipt Date: 20160203
  Transmission Date: 20160526
  Serious: No
  Sender: FDA-Public Use
  Company Number: US-UCBSA-2015010544

PATIENT
  Sex: Male

DRUGS (3)
  1. TEMODAR [Concomitant]
     Active Substance: TEMOZOLOMIDE
     Dosage: 440 MG, 5 DAYS PER MONTH
  2. MARINOL [Concomitant]
     Active Substance: DRONABINOL
     Indication: PRODUCT USED FOR UNKNOWN INDICATION
  3. KEPPRA [Suspect]
     Active Substance: LEVETIRACETAM
     Indication: PRODUCT USED FOR UNKNOWN INDICATION

REACTIONS (2)
  - Somnolence [Unknown]
  - Memory impairment [Unknown]
